FAERS Safety Report 6969511-9 (Version None)
Quarter: 2010Q3

REPORT INFORMATION
  Report Type: 
  Country: None (occurrence: None)
  Receive Date: 20100907
  Receipt Date: 20100907
  Transmission Date: 20110219
  Serious: No
  Sender: FDA-Public Use
  Company Number: None

PATIENT
  Sex: Female
  Weight: 44.4525 kg

DRUGS (1)
  1. SINGULAIR [Suspect]
     Dosage: 10 MG DAILY PO
     Route: 048
     Dates: start: 20100825, end: 20100830

REACTIONS (4)
  - EYE ROLLING [None]
  - MUSCLE TWITCHING [None]
  - MUSCULOSKELETAL DISORDER [None]
  - TIC [None]
